FAERS Safety Report 5446485-3 (Version None)
Quarter: 2007Q3

REPORT INFORMATION
  Report Type: 
  Country: None (occurrence: None)
  Receive Date: 20070907
  Receipt Date: 20070828
  Transmission Date: 20080115
  Serious: Yes (Death, Hospitalization)
  Sender: FDA-Public Use
  Company Number: GB-JNJFOC-20070806400

PATIENT
  Age: 53 Year
  Sex: Male

DRUGS (10)
  1. PARACETAMOL [Suspect]
  2. PARACETAMOL [Suspect]
     Indication: ANALGESIA
  3. LEVOFLOXACIN [Suspect]
     Indication: SEPSIS
  4. AUGMENTIN '125' [Suspect]
     Indication: SEPSIS
  5. GENTAMICIN [Suspect]
     Indication: SEPSIS
  6. METRONIDAZOLE [Suspect]
     Indication: SEPSIS
  7. TPN [Suspect]
     Indication: PARENTERAL NUTRITION
  8. DICLOFENAC [Concomitant]
     Indication: ANALGESIA
  9. OMEPRAZOLE [Concomitant]
  10. METOCLOPRAMIDE [Concomitant]

REACTIONS (3)
  - AMINOACIDURIA [None]
  - METABOLIC ACIDOSIS [None]
  - MYOCARDIAL INFARCTION [None]
